FAERS Safety Report 6220015-0 (Version None)
Quarter: 2009Q2

REPORT INFORMATION
  Report Type: 
  Country: None (occurrence: None)
  Receive Date: 20090609
  Receipt Date: 20090603
  Transmission Date: 20091009
  Serious: No
  Sender: FDA-Public Use
  Company Number: US-B.I. PHARMACEUTICALS,INC./RIDGEFIELD-2009-BP-06076BP

PATIENT
  Sex: Female

DRUGS (20)
  1. MIRAPEX [Suspect]
     Indication: RESTLESS LEGS SYNDROME
     Dosage: 1MG
     Route: 048
     Dates: start: 20060101
  2. LASIX [Concomitant]
     Dates: start: 20090328
  3. DOXAZOSIN MESYLATE [Concomitant]
  4. FUROSEMIDE [Concomitant]
     Dates: start: 20090328
  5. ATENOL [Concomitant]
  6. POTASSIUM CHLORIDE [Concomitant]
     Dates: start: 20090328
  7. TEKTURNA [Concomitant]
     Dates: start: 20090328
  8. DIOVAN [Concomitant]
  9. CLONIDINE [Concomitant]
  10. LEVOTHROXIN [Concomitant]
  11. PANTROPAZOLE [Concomitant]
  12. SLOW IRON [Concomitant]
  13. VITAMIN B6 [Concomitant]
  14. ASPIRIN [Concomitant]
  15. ASCORBIC ACID [Concomitant]
  16. MULTIVITAMIN (NO IRON) [Concomitant]
  17. CITRACAL-VIT D [Concomitant]
  18. CITRUCEL [Concomitant]
  19. PROVENTIL-HFA [Concomitant]
  20. SPIRIVA [Concomitant]
     Route: 055
     Dates: start: 20090318

REACTIONS (2)
  - DRUG EFFECT DECREASED [None]
  - DRUG INEFFECTIVE [None]
